FAERS Safety Report 14619594 (Version 5)
Quarter: 2018Q3

REPORT INFORMATION
  Report Type: Spontaneous
  Country: CA (occurrence: CA)
  Receive Date: 20180309
  Receipt Date: 20180829
  Transmission Date: 20181010
  Serious: Yes (Other)
  Sender: FDA-Public Use
  Company Number: CA-CELLTRION INC.-2017CA013062

PATIENT

DRUGS (16)
  1. METHOTREXATE. [Concomitant]
     Active Substance: METHOTREXATE
     Dosage: UNK
  2. CARBOCAL [Concomitant]
     Active Substance: CALCIUM CARBONATE
     Dosage: UNK
     Route: 065
  3. INFLECTRA [Suspect]
     Active Substance: INFLIXIMAB-DYYB
     Dosage: 1000 MG, CYCLIC (EVERY 6 WEEKS, THEN EVERY 8 WEEKS)
     Route: 042
     Dates: start: 20170914
  4. INFLECTRA [Suspect]
     Active Substance: INFLIXIMAB-DYYB
     Dosage: 1000 MG, CYCLIC  (EVERY 0, 2, 6 WEEKS, THEN EVERY 8 WEEKS)
     Route: 042
     Dates: start: 20180108
  5. INFLECTRA [Suspect]
     Active Substance: INFLIXIMAB-DYYB
     Dosage: 1000 MG, CYCLIC, THEN EVERY 6 WEEKS)
     Route: 042
     Dates: start: 20180301
  6. INFLECTRA [Suspect]
     Active Substance: INFLIXIMAB-DYYB
     Dosage: 1000 MG, CYCLIC, THEN EVERY 6 WEEKS)
     Route: 042
     Dates: start: 20180416
  7. INFLECTRA [Suspect]
     Active Substance: INFLIXIMAB-DYYB
     Indication: COLITIS ULCERATIVE
     Dosage: 600 MG, EVERY 2, 6 WEEKS THEN EVERY 8 WEEKS
     Route: 042
     Dates: start: 20170802
  8. INFLECTRA [Suspect]
     Active Substance: INFLIXIMAB-DYYB
     Dosage: 1000 MG, CYCLIC (EVERY 6 WEEKS)
     Route: 042
     Dates: start: 20171106
  9. DEXILANT [Concomitant]
     Active Substance: DEXLANSOPRAZOLE
     Dosage: UNK
     Route: 065
  10. INFLECTRA [Suspect]
     Active Substance: INFLIXIMAB-DYYB
     Dosage: 1000 MG, CYCLIC, THEN EVERY 6 WEEKS)
     Route: 042
     Dates: start: 20180709
  11. REACTINE                           /00884302/ [Concomitant]
     Active Substance: CETIRIZINE HYDROCHLORIDE
     Dosage: UNK
     Route: 065
  12. PREDNISONE. [Concomitant]
     Active Substance: PREDNISONE
     Dosage: 40 MG, UNK
     Route: 065
  13. INFLECTRA [Suspect]
     Active Substance: INFLIXIMAB-DYYB
     Dosage: 1000 MG, CYCLIC, THEN EVERY 6 WEEKS)
     Route: 042
     Dates: start: 20180528
  14. INFLECTRA [Suspect]
     Active Substance: INFLIXIMAB-DYYB
     Dosage: 1000 MG, CYCLIC, THEN EVERY 6 WEEKS)
     Route: 042
     Dates: start: 20180528
  15. INFLECTRA [Suspect]
     Active Substance: INFLIXIMAB-DYYB
     Dosage: 1000 MG, CYCLIC, THEN EVERY 6 WEEKS)
     Route: 042
     Dates: start: 20180820
  16. CITALOPRAM [Concomitant]
     Active Substance: CITALOPRAM HYDROBROMIDE
     Dosage: UNK
     Route: 065

REACTIONS (16)
  - Drug ineffective [Unknown]
  - Headache [Recovered/Resolved]
  - Ecchymosis [Unknown]
  - Condition aggravated [Unknown]
  - Productive cough [Not Recovered/Not Resolved]
  - Blood pressure fluctuation [Unknown]
  - Weight increased [Unknown]
  - Dyspnoea [Not Recovered/Not Resolved]
  - Product use issue [Unknown]
  - Tracheobronchitis [Unknown]
  - Pyrexia [Recovered/Resolved]
  - Rectal haemorrhage [Not Recovered/Not Resolved]
  - Cough [Recovering/Resolving]
  - Erythema [Not Recovered/Not Resolved]
  - Urticaria [Unknown]
  - Faeces soft [Unknown]

NARRATIVE: CASE EVENT DATE: 2017
